FAERS Safety Report 11440762 (Version 1)
Quarter: 2015Q3

REPORT INFORMATION
  Report Type: Spontaneous
  Country: US (occurrence: None)
  Receive Date: 20150831
  Receipt Date: 20150831
  Transmission Date: 20151125
  Serious: Yes (Hospitalization)
  Sender: FDA-Public Use
  Company Number: None

PATIENT
  Age: 62 Year
  Sex: Female
  Weight: 85.2 kg

DRUGS (24)
  1. ASPIRIN. [Concomitant]
     Active Substance: ASPIRIN
  2. DIVALPROEX [Concomitant]
     Active Substance: DIVALPROEX SODIUM
  3. SENNA [Concomitant]
     Active Substance: SENNA LEAF\SENNOSIDES\SENNOSIDES A AND B
  4. BISACODYL EC [Concomitant]
  5. CHLORPROMAZINE. [Concomitant]
     Active Substance: CHLORPROMAZINE
  6. POTASSIUM CHLORIDE SR [Concomitant]
  7. CLONAZEPAM. [Concomitant]
     Active Substance: CLONAZEPAM
  8. FOLIC ACID. [Concomitant]
     Active Substance: FOLIC ACID
  9. LAMOTRIGINE. [Concomitant]
     Active Substance: LAMOTRIGINE
  10. NORTRIPTYLINE [Concomitant]
     Active Substance: NORTRIPTYLINE
  11. ALPRAZOLAM. [Concomitant]
     Active Substance: ALPRAZOLAM
  12. FUROSEMIDE. [Concomitant]
     Active Substance: FUROSEMIDE
  13. LATANOPROST. [Concomitant]
     Active Substance: LATANOPROST
  14. MAGNESIUM OXIDE. [Concomitant]
     Active Substance: MAGNESIUM OXIDE
  15. OXYCODONE HYDROCHLORIDE IR [Concomitant]
     Active Substance: OXYCODONE HYDROCHLORIDE
  16. TIMOLOL. [Concomitant]
     Active Substance: TIMOLOL
  17. ACYCLOVIR. [Concomitant]
     Active Substance: ACYCLOVIR
  18. CALCIUM [Concomitant]
     Active Substance: CALCIUM
  19. LEVOTHYROXINE. [Concomitant]
     Active Substance: LEVOTHYROXINE
  20. EMLA [Concomitant]
     Active Substance: LIDOCAINE\PRILOCAINE
  21. LENALIDOMIDE [Suspect]
     Active Substance: LENALIDOMIDE
     Indication: PLASMA CELL MYELOMA
     Dosage: DAY 15 OF CURRENT CYCLE, 1 CAPSULE DAYS 1-21 ORAL
     Route: 048
  22. MODAFINIL. [Concomitant]
     Active Substance: MODAFINIL
  23. OMEPRAZOLE. [Concomitant]
     Active Substance: OMEPRAZOLE
  24. PROCHLORPERAZINE. [Concomitant]
     Active Substance: PROCHLORPERAZINE

REACTIONS (5)
  - Pyrexia [None]
  - Malaise [None]
  - Chills [None]
  - Cough [None]
  - Dyspnoea exertional [None]

NARRATIVE: CASE EVENT DATE: 20150826
